FAERS Safety Report 25929662 (Version 1)
Quarter: 2025Q4

REPORT INFORMATION
  Report Type: Spontaneous
  Country: US (occurrence: None)
  Receive Date: 20251015
  Receipt Date: 20251015
  Transmission Date: 20260117
  Serious: Yes (Hospitalization)
  Sender: FDA-CTU
  Company Number: None

PATIENT
  Age: 68 Year
  Sex: Female

DRUGS (14)
  1. TACROLIMUS [Suspect]
     Active Substance: TACROLIMUS
     Indication: Liver transplant
     Dosage: 4 CAPS BID  ORAL ?
     Route: 048
     Dates: start: 20250906
  2. PREDNISONE [Concomitant]
     Active Substance: PREDNISONE
  3. STIMULANT LAX PLUS [Concomitant]
  4. METHOCARBAMOL [Concomitant]
     Active Substance: METHOCARBAMOL
  5. MAGNESIUM [Concomitant]
     Active Substance: MAGNESIUM
  6. PROPRANOLOL [Concomitant]
     Active Substance: PROPRANOLOL HYDROCHLORIDE
  7. SPIRONOLACTONE [Concomitant]
     Active Substance: SPIRONOLACTONE
  8. SYNTHROID [Concomitant]
     Active Substance: LEVOTHYROXINE SODIUM
  9. VITAMIN A [Concomitant]
     Active Substance: VITAMIN A
  10. VITAMIN D [Concomitant]
     Active Substance: VITAMIN D NOS
  11. GABAPENTI N [Concomitant]
  12. MYCOPHENOLIC ACID [Concomitant]
     Active Substance: MYCOPHENOLIC ACID
  13. PANTOPRAZOLE [Concomitant]
     Active Substance: PANTOPRAZOLE
  14. BELSOMRA [Concomitant]
     Active Substance: SUVOREXANT

REACTIONS (1)
  - Hospitalisation [None]

NARRATIVE: CASE EVENT DATE: 20251009
